FAERS Safety Report 9057323 (Version 1)
Quarter: 2013Q1

REPORT INFORMATION
  Report Type: Spontaneous
  Country: IT (occurrence: IT)
  Receive Date: 20130131
  Receipt Date: 20130131
  Transmission Date: 20140127
  Serious: Yes (Other)
  Sender: FDA-Public Use
  Company Number: IT-TEVA-382650ISR

PATIENT
  Age: 42 None
  Sex: Female

DRUGS (3)
  1. AMOXICILLINA TRIIDRATO [Suspect]
     Route: 048
     Dates: start: 20121221, end: 20121221
  2. OKI [Suspect]
     Route: 048
     Dates: start: 20121221, end: 20121221
  3. TACHIPIRINA [Suspect]
     Route: 048
     Dates: start: 20121221, end: 20121221

REACTIONS (3)
  - Choking sensation [Unknown]
  - Myalgia [Unknown]
  - Face oedema [Unknown]
